FAERS Safety Report 5761196-2 (Version None)
Quarter: 2008Q2

REPORT INFORMATION
  Report Type: 
  Country: None (occurrence: None)
  Receive Date: 20080606
  Receipt Date: 20080530
  Transmission Date: 20081010
  Serious: Yes (Other)
  Sender: FDA-Public Use
  Company Number: B0524013A

PATIENT
  Age: 57 Year
  Sex: Male

DRUGS (3)
  1. KIVEXA [Suspect]
     Indication: DRUG USE FOR UNKNOWN INDICATION
     Route: 065
  2. ZIAGEN [Suspect]
     Indication: DRUG USE FOR UNKNOWN INDICATION
     Route: 065
  3. NEVIRAPINE [Concomitant]

REACTIONS (8)
  - ALCOHOL INTOLERANCE [None]
  - ASPARTATE AMINOTRANSFERASE INCREASED [None]
  - DEPRESSION [None]
  - FAT INTOLERANCE [None]
  - GAMMA-GLUTAMYLTRANSFERASE INCREASED [None]
  - HEPATIC ENZYME INCREASED [None]
  - MALAISE [None]
  - MOOD SWINGS [None]
